FAERS Safety Report 10980008 (Version 3)
Quarter: 2016Q2

REPORT INFORMATION
  Report Type: Spontaneous
  Country: US (occurrence: US)
  Receive Date: 20150402
  Receipt Date: 20160531
  Transmission Date: 20160815
  Serious: Yes (Other)
  Sender: FDA-Public Use
  Company Number: US-JNJFOC-20140210298

PATIENT
  Sex: Female

DRUGS (2)
  1. IMODIUM AD [Suspect]
     Active Substance: LOPERAMIDE HYDROCHLORIDE
     Indication: PRODUCT USED FOR UNKNOWN INDICATION
     Route: 048
  2. IMODIUM AD [Suspect]
     Active Substance: LOPERAMIDE HYDROCHLORIDE
     Route: 048

REACTIONS (3)
  - Choking [Unknown]
  - Dysphagia [Unknown]
  - Foreign body [Unknown]
